FAERS Safety Report 11385398 (Version 3)
Quarter: 2015Q4

REPORT INFORMATION
  Report Type: Spontaneous
  Country: US (occurrence: US)
  Receive Date: 20150815
  Receipt Date: 20151207
  Transmission Date: 20160304
  Serious: No
  Sender: FDA-Public Use
  Company Number: US-009507513-1508USA003642

PATIENT
  Sex: Female

DRUGS (1)
  1. NEXPLANON [Suspect]
     Active Substance: ETONOGESTREL
     Indication: HORMONE THERAPY
     Dosage: UNK
     Route: 059
     Dates: start: 20150713, end: 20150812

REACTIONS (2)
  - Device breakage [Recovered/Resolved]
  - No adverse event [Unknown]

NARRATIVE: CASE EVENT DATE: 2015
